FAERS Safety Report 17301494 (Version 1)
Quarter: 2020Q1

REPORT INFORMATION
  Report Type: Spontaneous
  Country: US (occurrence: US)
  Receive Date: 20200122
  Receipt Date: 20200122
  Transmission Date: 20200409
  Serious: No
  Sender: FDA-Public Use
  Company Number: US-ANTARES PHARMA, INC.-2019-SPO-TX-0069

PATIENT
  Age: 81 Year
  Sex: Male

DRUGS (1)
  1. XYOSTED [Suspect]
     Active Substance: TESTOSTERONE ENANTHATE
     Indication: HYPOGONADISM
     Dosage: 75 MG/0.5ML, QWK
     Route: 058
     Dates: start: 201911

REACTIONS (2)
  - Drug ineffective [Unknown]
  - Blood testosterone increased [Unknown]
